FAERS Safety Report 6864045-4 (Version None)
Quarter: 2010Q3

REPORT INFORMATION
  Report Type: 
  Country: None (occurrence: None)
  Receive Date: 20100721
  Receipt Date: 20100714
  Transmission Date: 20110219
  Serious: Yes (Hospitalization)
  Sender: FDA-Public Use
  Company Number: US-AMGEN-QUU402071

PATIENT
  Sex: Female
  Weight: 63.6 kg

DRUGS (8)
  1. NPLATE [Suspect]
     Indication: IDIOPATHIC THROMBOCYTOPENIC PURPURA
     Route: 058
     Dates: start: 20091222, end: 20091222
  2. RITUXAN [Concomitant]
     Dates: start: 20091208, end: 20091208
  3. CYTOXAN [Concomitant]
     Dates: start: 20091209, end: 20091209
  4. VINCRISTINE [Concomitant]
     Dates: start: 20091209, end: 20091209
  5. ADRIAMYCIN PFS [Concomitant]
     Dates: start: 20091209, end: 20091209
  6. UNSPECIFIED MEDICATION [Concomitant]
  7. NEUPOGEN [Concomitant]
  8. PREDNISONE [Concomitant]

REACTIONS (1)
  - PNEUMONIA [None]
